FAERS Safety Report 8244821-6 (Version None)
Quarter: 2012Q1

REPORT INFORMATION
  Report Type: 
  Country: None (occurrence: None)
  Receive Date: 20120329
  Receipt Date: 20110516
  Transmission Date: 20120608
  Serious: No
  Sender: FDA-Public Use
  Company Number: US-MYLANLABS-2011S1010406

PATIENT
  Age: 51 Year
  Sex: Male
  Weight: 70.31 kg

DRUGS (3)
  1. FENTANYL-100 [Suspect]
     Indication: FIBROMYALGIA
     Dosage: CHANGED Q 48 HOURS.
     Route: 062
     Dates: start: 20090101
  2. FENTANYL-100 [Suspect]
     Indication: BACK PAIN
     Dosage: CHANGED Q 48 HOURS.
     Route: 062
     Dates: start: 20090101
  3. PERCOCET [Concomitant]
     Indication: BREAKTHROUGH PAIN
     Dosage: 10MG/325MG
     Route: 048
     Dates: start: 20090101

REACTIONS (4)
  - DRUG EFFECT DECREASED [None]
  - DRUG WITHDRAWAL SYNDROME [None]
  - PAIN [None]
  - HOT FLUSH [None]
